FAERS Safety Report 24405717 (Version 1)
Quarter: 2024Q4

REPORT INFORMATION
  Report Type: Spontaneous
  Country: US (occurrence: US)
  Receive Date: 20241007
  Receipt Date: 20241007
  Transmission Date: 20250115
  Serious: No
  Sender: RANBAXY
  Company Number: US-SUN PHARMACEUTICAL INDUSTRIES LTD-2024R1-430006

PATIENT
  Sex: Female

DRUGS (1)
  1. CEQUA [Suspect]
     Active Substance: CYCLOSPORINE
     Indication: Dry eye
     Dosage: ONE DROP IN EACH EYE FOR EVERY 12 HOURS
     Route: 047
     Dates: start: 20231229

REACTIONS (3)
  - Eye pain [Unknown]
  - Headache [Unknown]
  - Ocular hyperaemia [Unknown]
